FAERS Safety Report 22344165 (Version 1)
Quarter: 2023Q2

REPORT INFORMATION
  Report Type: Spontaneous
  Country: US (occurrence: US)
  Receive Date: 20230519
  Receipt Date: 20230519
  Transmission Date: 20230722
  Serious: Yes (Other)
  Sender: FDA-Public Use
  Company Number: US-drreddys-SPO/USA/23/0165141

PATIENT
  Age: 28 Year
  Sex: Male

DRUGS (3)
  1. ESTRADIOL VALERATE [Suspect]
     Active Substance: ESTRADIOL VALERATE
     Indication: Transgender hormonal therapy
  2. PROGESTERONE [Suspect]
     Active Substance: PROGESTERONE
     Indication: Transgender hormonal therapy
  3. SPIRONOLACTONE [Suspect]
     Active Substance: SPIRONOLACTONE
     Indication: Transgender hormonal therapy

REACTIONS (2)
  - Keratoconus [Unknown]
  - Disease progression [Unknown]
